FAERS Safety Report 4786912-8 (Version None)
Quarter: 2005Q3

REPORT INFORMATION
  Report Type: 
  Country: None (occurrence: None)
  Receive Date: 20050930
  Receipt Date: 20050916
  Transmission Date: 20060218
  Serious: Yes (Death)
  Sender: FDA-Public Use
  Company Number: 2005S1009328

PATIENT
  Age: 48 Year
  Sex: Male
  Weight: 134.7183 kg

DRUGS (5)
  1. CLOZAPINE [Suspect]
     Indication: SCHIZOPHRENIA
     Dosage: 300 MG; HS; PO
     Route: 048
     Dates: start: 20000301, end: 20050821
  2. FOSINOPRIL SODIUM [Concomitant]
  3. VENLAFAXINE [Concomitant]
  4. HYDROCHLORIDE [Concomitant]
  5. ROSIGLITAZONE MALEATE [Concomitant]

REACTIONS (1)
  - CARDIOMEGALY [None]
